FAERS Safety Report 9748348 (Version 1)
Quarter: 2013Q4

REPORT INFORMATION
  Report Type: Spontaneous
  Country: US (occurrence: None)
  Receive Date: 20131206
  Receipt Date: 20131206
  Transmission Date: 20140711
  Serious: Yes (Hospitalization)
  Sender: FDA-Public Use
  Company Number: None

PATIENT
  Age: 69 Year
  Sex: Male
  Weight: 82.56 kg

DRUGS (13)
  1. ALEMTUZUMAB [Suspect]
     Indication: MULTIPLE SCLEROSIS
     Route: 042
     Dates: start: 20130212, end: 20130214
  2. ACYCLOVIR [Concomitant]
  3. CARBAMAZEPINE [Concomitant]
  4. CLONAZEPAM [Concomitant]
  5. CLOPIDOGREL [Concomitant]
  6. LAMOTRIGINE [Concomitant]
  7. NUEYNTA [Concomitant]
  8. ROPINIROLE [Concomitant]
  9. CMPD FUMADERM ENTERIC COATED [Concomitant]
  10. FLUOXETINE [Concomitant]
  11. HYDROCODONE [Concomitant]
  12. LOTREL [Concomitant]
  13. TYLENOL [Concomitant]

REACTIONS (3)
  - Fall [None]
  - Rib fracture [None]
  - Intervertebral discitis [None]
